FAERS Safety Report 15882752 (Version 1)
Quarter: 2019Q1

REPORT INFORMATION
  Report Type: Spontaneous
  Country: US (occurrence: US)
  Receive Date: 20190129
  Receipt Date: 20190129
  Transmission Date: 20190417
  Serious: No
  Sender: FDA-Public Use
  Company Number: US-ASTRAZENECA-2019SE16252

PATIENT
  Sex: Male
  Weight: 113.4 kg

DRUGS (1)
  1. SEROQUEL XR [Suspect]
     Active Substance: QUETIAPINE FUMARATE
     Indication: AFFECTIVE DISORDER
     Route: 048
     Dates: start: 2009

REACTIONS (8)
  - Choking [Unknown]
  - Paraesthesia [Unknown]
  - Tremor [Unknown]
  - Product use in unapproved indication [Unknown]
  - Rash generalised [Unknown]
  - Off label use [Unknown]
  - Pulse abnormal [Unknown]
  - Dysphagia [Unknown]
